FAERS Safety Report 9735788 (Version 1)
Quarter: 2013Q4

REPORT INFORMATION
  Report Type: Spontaneous
  Country: US (occurrence: US)
  Receive Date: 20131206
  Receipt Date: 20131206
  Transmission Date: 20140711
  Serious: No
  Sender: FDA-Public Use
  Company Number: US-GILEAD-2009-0023067

PATIENT
  Sex: Male
  Weight: 92.53 kg

DRUGS (16)
  1. LETAIRIS [Suspect]
     Indication: PULMONARY ARTERIAL HYPERTENSION
     Route: 048
     Dates: start: 20080808
  2. VIAGRA [Concomitant]
  3. LASIX [Concomitant]
  4. ASPIRIN [Concomitant]
  5. AVAPRO [Concomitant]
  6. ALBUTEROL INHALER [Concomitant]
  7. FLONASE [Concomitant]
  8. ZOCOR [Concomitant]
  9. INDOCIN [Concomitant]
  10. ACTOS [Concomitant]
  11. PRILOSEC [Concomitant]
  12. ALLEGRA [Concomitant]
  13. CITRACAL [Concomitant]
  14. CENTRUM [Concomitant]
  15. BENEFIBER [Concomitant]
  16. FIBER LAXATIVE [Concomitant]

REACTIONS (1)
  - Arthropathy [Unknown]
